FAERS Safety Report 6970502-2 (Version None)
Quarter: 2010Q3

REPORT INFORMATION
  Report Type: 
  Country: None (occurrence: None)
  Receive Date: 20100908
  Receipt Date: 20100825
  Transmission Date: 20110219
  Serious: Yes (Death)
  Sender: FDA-Public Use
  Company Number: US-ROCHE-709832

PATIENT
  Sex: Male

DRUGS (1)
  1. MYCOPHENOLATE MOFETIL [Suspect]
     Indication: PROPHYLAXIS AGAINST TRANSPLANT REJECTION
     Dosage: DOSE: 250, TWICE, FROM DATE OF TRANSPLANT TO DEATH
     Route: 065
     Dates: start: 19910101

REACTIONS (5)
  - ARRHYTHMIA [None]
  - CORONARY ARTERY DISEASE [None]
  - FALL [None]
  - RENAL FAILURE [None]
  - SYNCOPE [None]
